FAERS Safety Report 9831002 (Version 5)
Quarter: 2014Q2

REPORT INFORMATION
  Report Type: Report from Study
  Country: DE (occurrence: DE)
  Receive Date: 20140120
  Receipt Date: 20140629
  Transmission Date: 20141212
  Serious: Yes (Other)
  Sender: FDA-Public Use
  Company Number: PHHY2014DE003039

PATIENT
  Sex: Male
  Weight: 82 kg

DRUGS (13)
  1. ULTIBRO BREEZHALER [Suspect]
     Indication: CHRONIC OBSTRUCTIVE PULMONARY DISEASE
     Dosage: 1 DF, QD IN THE MORNING
     Route: 055
     Dates: start: 20131219, end: 20131219
  2. NO TREATMENT RECEIVED [Suspect]
     Dosage: UNK, NO TREATMENT
  3. ATROVENT [Concomitant]
     Indication: CHRONIC OBSTRUCTIVE PULMONARY DISEASE
     Dosage: 1 DF, BID (IN THE MORNING AND EVENING)
     Dates: start: 20131219
  4. BERODUAL [Concomitant]
     Indication: CHRONIC OBSTRUCTIVE PULMONARY DISEASE
     Dosage: 1 DF, PRN
     Route: 055
     Dates: start: 20050324
  5. BERODUAL [Concomitant]
     Indication: CHEST DISCOMFORT
  6. METHYLPREDNISOLON ^JENAPHARM^ [Concomitant]
     Indication: CHRONIC OBSTRUCTIVE PULMONARY DISEASE
     Dosage: 0.5 DF, QD
     Dates: start: 20131219
  7. SANASTHMAX [Concomitant]
     Indication: CHRONIC OBSTRUCTIVE PULMONARY DISEASE
     Dosage: 1 DF, BID
     Route: 055
     Dates: start: 20131219
  8. APROVEL [Concomitant]
     Indication: HYPERTENSION
     Dosage: 1 UNK, UNK
  9. PANTOPRAZOL AL [Concomitant]
     Dosage: 1 DF, UNK
  10. TAMSULOSIN [Concomitant]
     Indication: BENIGN PROSTATIC HYPERPLASIA
     Dosage: 1 DF, UNK
  11. SPIRIVA [Concomitant]
     Indication: CHRONIC OBSTRUCTIVE PULMONARY DISEASE
     Dosage: 1 DF, QD
     Dates: start: 20130107, end: 20131218
  12. VIANI [Concomitant]
     Indication: CHRONIC OBSTRUCTIVE PULMONARY DISEASE
     Dosage: 1 DF, BID (IN MORNING AND IN EVENING)
     Dates: start: 2011, end: 20131218
  13. NAC 500 [Concomitant]
     Indication: CHRONIC OBSTRUCTIVE PULMONARY DISEASE
     Dosage: 600 UG, PRN
     Dates: start: 20130225

REACTIONS (3)
  - Chest discomfort [Recovered/Resolved]
  - Dyspnoea [Recovered/Resolved]
  - Pruritus generalised [Recovered/Resolved]
